FAERS Safety Report 6452929-0 (Version None)
Quarter: 2009Q4

REPORT INFORMATION
  Report Type: 
  Country: None (occurrence: None)
  Receive Date: 20091124
  Receipt Date: 20091115
  Transmission Date: 20100525
  Serious: Yes (Other)
  Sender: FDA-Public Use
  Company Number: CA-JNJFOC-20091104856

PATIENT
  Sex: Female
  Weight: 67 kg

DRUGS (19)
  1. REMICADE [Suspect]
     Dosage: 4TH INFUSION SINCE MAY 2009
     Dates: start: 20050104, end: 20090928
  2. REMICADE [Suspect]
     Dates: start: 20050104, end: 20090928
  3. REMICADE [Suspect]
     Dates: start: 20050104, end: 20090928
  4. REMICADE [Suspect]
     Dates: start: 20050104, end: 20090928
  5. REMICADE [Suspect]
     Dates: start: 20050104, end: 20090928
  6. REMICADE [Suspect]
     Dates: start: 20050104, end: 20090928
  7. REMICADE [Suspect]
     Dates: start: 20050104, end: 20090928
  8. REMICADE [Suspect]
     Dates: start: 20050104, end: 20090928
  9. REMICADE [Suspect]
     Dates: start: 20050104, end: 20090928
  10. REMICADE [Suspect]
     Dates: start: 20050104, end: 20090928
  11. REMICADE [Suspect]
     Dates: start: 20050104, end: 20090928
  12. REMICADE [Suspect]
     Dates: start: 20050104, end: 20090928
  13. REMICADE [Suspect]
     Dates: start: 20050104, end: 20090928
  14. REMICADE [Suspect]
     Dates: start: 20050104, end: 20090928
  15. REMICADE [Suspect]
     Dates: start: 20050104, end: 20090928
  16. REMICADE [Suspect]
     Indication: CROHN'S DISEASE
     Dates: start: 20050104, end: 20090928
  17. BENADRYL [Concomitant]
     Indication: PREMEDICATION
     Route: 042
  18. TYLENOL (CAPLET) [Concomitant]
     Indication: PREMEDICATION
     Route: 048
  19. HYDROCORTISONE [Concomitant]
     Route: 042

REACTIONS (1)
  - TUBERCULOSIS [None]
